FAERS Safety Report 11595859 (Version 1)
Quarter: 2015Q4

REPORT INFORMATION
  Report Type: Spontaneous
  Country: US (occurrence: None)
  Receive Date: 20151005
  Receipt Date: 20151005
  Transmission Date: 20160304
  Serious: No
  Sender: FDA-Public Use
  Company Number: None

PATIENT
  Sex: Female

DRUGS (2)
  1. CAPECITABINE. [Concomitant]
     Active Substance: CAPECITABINE
  2. TYKERB [Suspect]
     Active Substance: LAPATINIB DITOSYLATE
     Indication: SMALL INTESTINE CARCINOMA
     Route: 048
     Dates: start: 20150803

REACTIONS (2)
  - Oedema peripheral [None]
  - Blister [None]

NARRATIVE: CASE EVENT DATE: 2015
